FAERS Safety Report 4693000-8 (Version None)
Quarter: 2005Q2

REPORT INFORMATION
  Report Type: 
  Country: None (occurrence: None)
  Receive Date: 20050615
  Receipt Date: 20050607
  Transmission Date: 20051028
  Serious: Yes (Hospitalization)
  Sender: FDA-Public Use
  Company Number: 2005BH000141

PATIENT
  Age: 7 Year
  Sex: Male

DRUGS (2)
  1. ATIVAN [Suspect]
     Dosage: 1 MG, EVERY DAY
  2. ADDERALL [Concomitant]

REACTIONS (4)
  - ANXIETY [None]
  - DRUG INTERACTION [None]
  - PHYSICAL ASSAULT [None]
  - PSYCHOTIC DISORDER [None]
